FAERS Safety Report 9225997 (Version 2)
Quarter: 2013Q2

REPORT INFORMATION
  Report Type: Spontaneous
  Country: US (occurrence: US)
  Receive Date: 20130411
  Receipt Date: 20130527
  Transmission Date: 20140414
  Serious: No
  Sender: FDA-Public Use
  Company Number: US-009507513-1304USA001009

PATIENT
  Age: 63 Year
  Sex: Male
  Weight: 190 kg

DRUGS (1)
  1. AZASITE [Suspect]
     Dosage: 2 GTT, BID
     Route: 047
     Dates: start: 201303, end: 20130401

REACTIONS (4)
  - Drug dose omission [Unknown]
  - Drug dose omission [Unknown]
  - Product quality issue [Unknown]
  - No adverse event [Unknown]
